FAERS Safety Report 15689099 (Version 1)
Quarter: 2018Q4

REPORT INFORMATION
  Report Type: Spontaneous
  Country: US (occurrence: US)
  Receive Date: 20181204
  Receipt Date: 20181204
  Transmission Date: 20190205
  Serious: Yes (Hospitalization, Disabling)
  Sender: FDA-Public Use
  Company Number: None

PATIENT
  Age: 37 Year
  Sex: Male
  Weight: 83.25 kg

DRUGS (1)
  1. LEVAQUIN [Suspect]
     Active Substance: LEVOFLOXACIN
     Indication: BACTERIAL INFECTION
     Dosage: ?          QUANTITY:1 TABLET(S);?
     Route: 048
     Dates: start: 20181120, end: 20181128

REACTIONS (9)
  - Drug ineffective [None]
  - Back pain [None]
  - Paraesthesia [None]
  - Abdominal pain upper [None]
  - Heart rate increased [None]
  - Hypoaesthesia [None]
  - Sensory disturbance [None]
  - Feeling abnormal [None]
  - Insomnia [None]

NARRATIVE: CASE EVENT DATE: 20181201
